FAERS Safety Report 7873786-1 (Version None)
Quarter: 2011Q3

REPORT INFORMATION
  Report Type: 
  Country: None (occurrence: None)
  Receive Date: 20110927
  Receipt Date: 20100910
  Transmission Date: 20111222
  Serious: Yes (Hospitalization, Other)
  Sender: FDA-Public Use
  Company Number: WAES 1009USA01162

PATIENT
  Age: 82 Year
  Sex: Female

DRUGS (12)
  1. ALBUTEROL [Concomitant]
  2. VYTORIN [Suspect]
     Dosage: PO
     Route: 048
     Dates: end: 20100801
  3. LISINOPRIL [Concomitant]
  4. REVLIMID [Suspect]
     Indication: MULTIPLE MYELOMA
     Dosage: 5 MG/DAILY; 5 MG/DAILY
     Dates: start: 20100628, end: 20100701
  5. REVLIMID [Suspect]
     Indication: MULTIPLE MYELOMA
     Dosage: 5 MG/DAILY; 5 MG/DAILY
     Dates: start: 20100814
  6. ONDANSETRON [Concomitant]
  7. PLAVIX [Concomitant]
  8. DEXAMETHASONE [Concomitant]
  9. COMPAZINE [Concomitant]
  10. ASPIRIN [Concomitant]
  11. LORAZEPAM [Concomitant]
  12. NITROGLYCERIN [Concomitant]

REACTIONS (1)
  - RHABDOMYOLYSIS [None]
